FAERS Safety Report 21255927 (Version 4)
Quarter: 2022Q4

REPORT INFORMATION
  Report Type: Report from Study
  Country: US (occurrence: US)
  Receive Date: 20220825
  Receipt Date: 20221214
  Transmission Date: 20230112
  Serious: Yes (Other)
  Sender: FDA-Public Use
  Company Number: US-ABBVIE-22K-163-4515798-00

PATIENT
  Age: 77 Year
  Sex: Female

DRUGS (3)
  1. IMBRUVICA [Suspect]
     Active Substance: IBRUTINIB
     Indication: Chronic lymphocytic leukaemia
     Route: 048
     Dates: start: 202209
  2. IMBRUVICA [Suspect]
     Active Substance: IBRUTINIB
     Indication: Chronic lymphocytic leukaemia
     Dosage: STOP DATE 2022
     Route: 048
     Dates: start: 202202
  3. IMBRUVICA [Suspect]
     Active Substance: IBRUTINIB
     Indication: Chronic lymphocytic leukaemia
     Dosage: STOP DATE 2022
     Route: 048
     Dates: start: 20220210

REACTIONS (9)
  - Surgery [Unknown]
  - Haemorrhoids [Unknown]
  - Anal cancer [Not Recovered/Not Resolved]
  - Lymphocyte count decreased [Unknown]
  - Neoplasm malignant [Recovered/Resolved]
  - Onychoclasis [Unknown]
  - Increased tendency to bruise [Unknown]
  - Muscle spasms [Unknown]
  - Arthritis [Unknown]

NARRATIVE: CASE EVENT DATE: 20220901
